FAERS Safety Report 23065449 (Version 4)
Quarter: 2023Q4

REPORT INFORMATION
  Report Type: Report from Study
  Country: US (occurrence: US)
  Receive Date: 20231013
  Receipt Date: 20231222
  Transmission Date: 20240109
  Serious: No
  Sender: FDA-Public Use
  Company Number: US-002147023-NVSC2023US219189

PATIENT
  Age: 42 Year
  Sex: Male

DRUGS (3)
  1. KESIMPTA [Suspect]
     Active Substance: OFATUMUMAB
     Indication: Clinically isolated syndrome
     Dosage: 20 MG (1 DOSE A WEEK FOR THE 1ST 3 WEEKS, THEN SKIP A WEEK, THEN 28 DAYS PER HCP)
     Route: 058
  2. KESIMPTA [Suspect]
     Active Substance: OFATUMUMAB
     Indication: Relapsing-remitting multiple sclerosis
  3. KESIMPTA [Suspect]
     Active Substance: OFATUMUMAB
     Indication: Secondary progressive multiple sclerosis

REACTIONS (4)
  - Pyrexia [Unknown]
  - Chills [Unknown]
  - Muscle twitching [Unknown]
  - Migraine [Unknown]

NARRATIVE: CASE EVENT DATE: 20230916
